FAERS Safety Report 6411031-4 (Version None)
Quarter: 2009Q4

REPORT INFORMATION
  Report Type: 
  Country: None (occurrence: None)
  Receive Date: 20091020
  Receipt Date: 20091020
  Transmission Date: 20100525
  Serious: Yes (Other)
  Sender: FDA-Public Use
  Company Number: None

PATIENT
  Sex: Female
  Weight: 68.0396 kg

DRUGS (6)
  1. HUMIRA [Suspect]
     Indication: NAIL DISORDER
     Dosage: 40 MG EVERY OTHER WEEK SQ
     Route: 058
  2. HUMIRA [Suspect]
     Indication: PSORIATIC ARTHROPATHY
     Dosage: 40 MG EVERY OTHER WEEK SQ
     Route: 058
  3. METHOTREXATE [Concomitant]
  4. FOLIC ACID [Concomitant]
  5. M.V.I. [Concomitant]
  6. LISINOPRIL [Concomitant]

REACTIONS (2)
  - ERYTHEMA NODOSUM [None]
  - SKIN NODULE [None]
